FAERS Safety Report 14144750 (Version 2)
Quarter: 2017Q4

REPORT INFORMATION
  Report Type: Spontaneous
  Country: SK (occurrence: SK)
  Receive Date: 20171031
  Receipt Date: 20171206
  Transmission Date: 20180321
  Serious: Yes (Death)
  Sender: FDA-Public Use
  Company Number: SK-ROCHE-2017074

PATIENT
  Age: 82 Year
  Sex: Female

DRUGS (1)
  1. ACTILYSE [Suspect]
     Active Substance: ALTEPLASE
     Indication: CEREBROVASCULAR ACCIDENT
     Route: 042
     Dates: start: 2017, end: 2017

REACTIONS (2)
  - Atrial fibrillation [Fatal]
  - Cardiac failure [Fatal]

NARRATIVE: CASE EVENT DATE: 2017
